FAERS Safety Report 19147914 (Version 1)
Quarter: 2021Q2

REPORT INFORMATION
  Report Type: Spontaneous
  Country: FR (occurrence: FR)
  Receive Date: 20210417
  Receipt Date: 20210417
  Transmission Date: 20210717
  Serious: Yes (Other)
  Sender: FDA-Public Use
  Company Number: FR-AUROBINDO-AUR-APL-2017-10286

PATIENT
  Age: 61 Year
  Sex: Male

DRUGS (1)
  1. FENOFIBRATE. [Suspect]
     Active Substance: FENOFIBRATE
     Indication: TYPE V HYPERLIPIDAEMIA
     Dosage: 160 MG, ONCE A DAY
     Route: 065

REACTIONS (4)
  - Chromaturia [Unknown]
  - Fatigue [Unknown]
  - Pruritus [Recovered/Resolved]
  - Hepatitis cholestatic [Recovered/Resolved]
